FAERS Safety Report 13087959 (Version 2)
Quarter: 2017Q1

REPORT INFORMATION
  Report Type: Report from Study
  Country: CN (occurrence: CN)
  Receive Date: 20170105
  Receipt Date: 20170125
  Transmission Date: 20170428
  Serious: Yes (Other)
  Sender: FDA-Public Use
  Company Number: CN-ELI_LILLY_AND_COMPANY-CN201701000096

PATIENT
  Age: 64 Year
  Sex: Female

DRUGS (4)
  1. CETUXIMAB. [Suspect]
     Active Substance: CETUXIMAB
     Indication: RECTAL CANCER
     Dosage: 7 VIALS (100MG/VIAL)
     Route: 065
     Dates: start: 201601, end: 201612
  2. CETUXIMAB. [Suspect]
     Active Substance: CETUXIMAB
     Dosage: UNK, OTHER
     Route: 065
  3. CAPECITABINE. [Concomitant]
     Active Substance: CAPECITABINE
     Indication: RECTAL CANCER
     Dosage: UNK
  4. OXALIPLATIN. [Concomitant]
     Active Substance: OXALIPLATIN
     Indication: RECTAL CANCER
     Dosage: UNK

REACTIONS (3)
  - Facial bones fracture [Recovering/Resolving]
  - Epistaxis [Recovering/Resolving]
  - Off label use [Unknown]

NARRATIVE: CASE EVENT DATE: 201609
